FAERS Safety Report 7868947-1 (Version None)
Quarter: 2011Q4

REPORT INFORMATION
  Report Type: 
  Country: None (occurrence: None)
  Receive Date: 20111026
  Receipt Date: 20111026
  Transmission Date: 20120403
  Serious: Yes (Hospitalization)
  Sender: FDA-Public Use
  Company Number: None

PATIENT
  Age: 68 Year
  Sex: Male
  Weight: 91.8 kg

DRUGS (1)
  1. PRAZOSIN HCL [Suspect]
     Indication: BENIGN PROSTATIC HYPERPLASIA
     Dosage: 2 MG, AT BEDTIME, PO
     Route: 048
     Dates: start: 20110302, end: 20110917

REACTIONS (9)
  - HEADACHE [None]
  - BLOOD UREA INCREASED [None]
  - DEHYDRATION [None]
  - BLOOD CREATININE INCREASED [None]
  - BLOOD PRESSURE FLUCTUATION [None]
  - TROPONIN INCREASED [None]
  - DIZZINESS [None]
  - HYPOTENSION [None]
  - DYSPNOEA [None]
